FAERS Safety Report 22337585 (Version 1)
Quarter: 2023Q2

REPORT INFORMATION
  Report Type: Spontaneous
  Country: CA (occurrence: None)
  Receive Date: 20230518
  Receipt Date: 20230518
  Transmission Date: 20230721
  Serious: Yes (Other)
  Sender: FDA-Public Use
  Company Number: CA-PFIZER INC-202200755319

PATIENT
  Age: 42 Year
  Sex: Female

DRUGS (19)
  1. METHOTREXATE [Suspect]
     Active Substance: METHOTREXATE
     Indication: Crohn^s disease
     Route: 048
  2. METHOTREXATE [Suspect]
     Active Substance: METHOTREXATE
     Dosage: REDUCED BY HALF
     Route: 065
  3. AMLODIPINE [Concomitant]
     Active Substance: AMLODIPINE BESYLATE
     Indication: Hypertension
     Route: 048
  4. BETAMETHASONE DIPROPIONATE [Concomitant]
     Active Substance: BETAMETHASONE DIPROPIONATE
     Dosage: ONCE A DAY AS NEEDED
     Route: 061
  5. BUDESONIDE\FORMOTEROL [Concomitant]
     Active Substance: BUDESONIDE\FORMOTEROL
     Dosage: 6 PLUS 200 MCG TWICE A DAY AS NEEDED
     Route: 055
  6. CHOLESTYRAMINE [Concomitant]
     Active Substance: CHOLESTYRAMINE
     Dosage: MIX SACHET CONTENT IN 120-180 ML OF WATER
     Route: 048
  7. DESONIDE [Concomitant]
     Active Substance: DESONIDE
     Indication: Dermatitis
     Dosage: AS NEEDED
     Route: 061
  8. FOLIC ACID [Concomitant]
     Active Substance: FOLIC ACID
     Dosage: NOT ON SAME DAY AS METHOTREXATE
     Route: 048
  9. FERROUS SULFATE [Concomitant]
     Active Substance: FERROUS SULFATE
     Route: 048
  10. INFLECTRA [Concomitant]
     Active Substance: INFLIXIMAB-DYYB
     Indication: Crohn^s disease
     Route: 042
     Dates: start: 20220611
  11. INFLECTRA [Concomitant]
     Active Substance: INFLIXIMAB-DYYB
     Route: 042
     Dates: start: 20230401
  12. INFLECTRA [Concomitant]
     Active Substance: INFLIXIMAB-DYYB
     Route: 042
  13. MOMETASONE [Concomitant]
     Active Substance: MOMETASONE
     Dosage: 2 PUFFS IN EACH NOSTRIL A DAY
     Route: 055
  14. METRONIDAZOLE [Concomitant]
     Active Substance: METRONIDAZOLE
     Route: 061
  15. PANTOPRAZOLE [Concomitant]
     Active Substance: PANTOPRAZOLE
     Route: 048
  16. ALBUTEROL [Concomitant]
     Active Substance: ALBUTEROL
     Dosage: 2 PUFFS UP TO 4 TIMES PER DAY AS NEEDED
     Route: 055
  17. TERBINAFINE [Concomitant]
     Active Substance: TERBINAFINE
     Dosage: ONCE A DAY AS NEEDED
     Route: 061
  18. VITAMIN B12 [Concomitant]
     Active Substance: CYANOCOBALAMIN
     Route: 048
  19. VITAMIN D3 [Concomitant]
     Active Substance: CHOLECALCIFEROL
     Dosage: 2X/WEEK
     Route: 048

REACTIONS (5)
  - Drug ineffective for unapproved indication [Unknown]
  - Inflammatory bowel disease [Unknown]
  - Product use in unapproved indication [Unknown]
  - Abdominal discomfort [Unknown]
  - Diarrhoea [Unknown]
